FAERS Safety Report 26133518 (Version 2)
Quarter: 2025Q4

REPORT INFORMATION
  Report Type: Spontaneous
  Country: CA (occurrence: CA)
  Receive Date: 20251209
  Receipt Date: 20251218
  Transmission Date: 20260117
  Serious: Yes (Other)
  Sender: SANOFI AVENTIS
  Company Number: CA-TEVA-2023-CA-2851216

PATIENT
  Sex: Male

DRUGS (5)
  1. CIPROFLOXACIN HYDROCHLORIDE [Suspect]
     Active Substance: CIPROFLOXACIN HYDROCHLORIDE
     Indication: Mycobacterium haemophilum infection
     Dosage: UNK
     Route: 065
  2. RIFADIN [Suspect]
     Active Substance: RIFAMPIN
     Indication: Mycobacterium haemophilum infection
     Dosage: UNK
     Route: 065
  3. CLARITHROMYCIN [Suspect]
     Active Substance: CLARITHROMYCIN
     Indication: Mycobacterium haemophilum infection
     Dosage: UNK
     Route: 065
  4. RIFAMPIN\TRIMETHOPRIM [Suspect]
     Active Substance: RIFAMPIN\TRIMETHOPRIM
     Indication: Mycobacterium haemophilum infection
     Dosage: UNK
  5. REMICADE [Suspect]
     Active Substance: INFLIXIMAB
     Indication: Rheumatoid arthritis
     Dosage: UNK
     Route: 042

REACTIONS (6)
  - Gout [Not Recovered/Not Resolved]
  - Immunodeficiency [Not Recovered/Not Resolved]
  - Rheumatoid arthritis [Not Recovered/Not Resolved]
  - Squamous cell carcinoma [Not Recovered/Not Resolved]
  - Mycobacterium haemophilum infection [Not Recovered/Not Resolved]
  - Therapeutic response decreased [Not Recovered/Not Resolved]
